FAERS Safety Report 11852370 (Version 1)
Quarter: 2015Q4

REPORT INFORMATION
  Report Type: Spontaneous
  Country: MY (occurrence: MY)
  Receive Date: 20151218
  Receipt Date: 20151218
  Transmission Date: 20160305
  Serious: Yes (Hospitalization, Other)
  Sender: FDA-Public Use
  Company Number: MY-BAYER-2015-485602

PATIENT
  Sex: Male
  Weight: 1.5 kg

DRUGS (1)
  1. NIFEDIPINE. [Suspect]
     Active Substance: NIFEDIPINE

REACTIONS (2)
  - Premature baby [Recovered/Resolved]
  - Low birth weight baby [None]
